FAERS Safety Report 8564084-1 (Version None)
Quarter: 2012Q3

REPORT INFORMATION
  Report Type: 
  Country: None (occurrence: None)
  Receive Date: 20120803
  Receipt Date: 20120725
  Transmission Date: 20120928
  Serious: Yes (Hospitalization, Other)
  Sender: FDA-Public Use
  Company Number: US-BAYER-2011-016827

PATIENT
  Age: 30 Year
  Sex: Female
  Weight: 76 kg

DRUGS (12)
  1. NAPROXEN (ALEVE) [Concomitant]
     Dosage: UNK
     Dates: start: 19910101
  2. SINGULAIR [Concomitant]
     Indication: ASTHMA
  3. PREVACID [Concomitant]
     Dosage: UNK
     Dates: start: 20031001
  4. BENTYL [Concomitant]
     Indication: ABDOMINAL PAIN
     Dosage: 10 MG, BID
     Dates: start: 20031009
  5. YASMIN [Suspect]
     Indication: PREMENSTRUAL SYNDROME
     Dosage: DAILY
     Route: 048
     Dates: start: 20021008, end: 20031021
  6. YASMIN [Suspect]
     Indication: MENSTRUATION IRREGULAR
  7. SINGULAIR [Concomitant]
     Indication: DYSPNOEA
     Dosage: UNK
     Dates: start: 20031001
  8. LOVENOX [Concomitant]
     Indication: THROMBOSIS PROPHYLAXIS
  9. FLUTICASONE PROPIONATE [Concomitant]
     Indication: ASTHMA
     Dosage: UNK
     Dates: start: 20031001
  10. LEVAQUIN [Concomitant]
     Dosage: UNK
     Dates: start: 20030901
  11. FLUTICASONE PROPIONATE [Concomitant]
     Indication: DYSPNOEA
  12. NAPROXEN SODIUM AND PSEUDOEPHEDRINE HYDROCHLORIDE [Concomitant]
     Dosage: UNK
     Dates: start: 19910101

REACTIONS (9)
  - CHEST PAIN [None]
  - PAIN [None]
  - DYSPNOEA [None]
  - INJURY [None]
  - SKIN WARM [None]
  - PULMONARY EMBOLISM [None]
  - CHOLECYSTECTOMY [None]
  - COUGH [None]
  - PAIN IN EXTREMITY [None]
